FAERS Safety Report 9646333 (Version 2)
Quarter: 2013Q4

REPORT INFORMATION
  Report Type: Spontaneous
  Country: LU (occurrence: LU)
  Receive Date: 20131025
  Receipt Date: 20131029
  Transmission Date: 20140711
  Serious: Yes (Death, Hospitalization, Other)
  Sender: FDA-Public Use
  Company Number: LU-B.I. PHARMACEUTICALS,INC./RIDGEFIELD-2013-BI-34346BL

PATIENT
  Age: 76 Year
  Sex: Female

DRUGS (3)
  1. PRADAXA [Suspect]
     Indication: ATRIAL FIBRILLATION
     Dosage: 220 NR
  2. ANTIHYPERTENSIVE THERAPY [Concomitant]
     Indication: HYPERTENSION
  3. LEDERTREXATE [Concomitant]

REACTIONS (2)
  - Cerebral haemorrhage [Fatal]
  - Fall [Unknown]
